FAERS Safety Report 6820120-1 (Version None)
Quarter: 2010Q3

REPORT INFORMATION
  Report Type: 
  Country: None (occurrence: None)
  Receive Date: 20100707
  Receipt Date: 20100525
  Transmission Date: 20110219
  Serious: No
  Sender: FDA-Public Use
  Company Number: US-BAXTER-2009BH016319

PATIENT
  Age: 55 Year
  Sex: Female

DRUGS (6)
  1. HEPARIN SODIUM [Suspect]
     Indication: INTRAVENOUS CATHETER MANAGEMENT
     Route: 042
     Dates: start: 20070921, end: 20080414
  2. HEPARIN SODIUM [Suspect]
     Route: 042
     Dates: start: 20070921, end: 20080414
  3. HEPARIN SODIUM [Suspect]
     Route: 042
     Dates: start: 20080404, end: 20080404
  4. ANTIBIOTICS [Concomitant]
     Indication: PRODUCT USED FOR UNKNOWN INDICATION
     Route: 042
  5. ROCEPHIN [Concomitant]
     Indication: LYME DISEASE
     Route: 042
  6. SODIUM CHLORIDE 0.9% IN PLASTIC CONTAINER [Concomitant]
     Indication: INTRAVENOUS CATHETER MANAGEMENT
     Route: 042

REACTIONS (11)
  - BLOOD PRESSURE DECREASED [None]
  - DIZZINESS [None]
  - DYSPEPSIA [None]
  - FEELING HOT [None]
  - INDURATION [None]
  - MALAISE [None]
  - MUSCLE SPASMS [None]
  - MUSCULAR WEAKNESS [None]
  - NAUSEA [None]
  - PRESYNCOPE [None]
  - SKIN DISCOLOURATION [None]
